FAERS Safety Report 9801803 (Version 2)
Quarter: 2014Q1

REPORT INFORMATION
  Report Type: Spontaneous
  Country: US (occurrence: US)
  Receive Date: 20140107
  Receipt Date: 20140130
  Transmission Date: 20141002
  Serious: Yes (Life-Threatening, Hospitalization)
  Sender: FDA-Public Use
  Company Number: US-B.I. PHARMACEUTICALS,INC./RIDGEFIELD-2014-BI-00364BP

PATIENT
  Age: 57 Year
  Sex: Female
  Weight: 91.7 kg

DRUGS (19)
  1. PRADAXA [Suspect]
     Indication: ATRIAL FIBRILLATION
     Dosage: 300 MG
     Route: 048
     Dates: start: 20121001, end: 20140102
  2. PRADAXA [Suspect]
     Indication: CEREBROVASCULAR ACCIDENT PROPHYLAXIS
  3. PRADAXA [Suspect]
     Indication: DEEP VEIN THROMBOSIS
  4. TOPAMAX [Concomitant]
     Indication: CONVULSION
     Dosage: 400 MG
     Route: 048
  5. TOPAMAX [Concomitant]
     Indication: MIGRAINE
  6. SOTALOL [Concomitant]
     Indication: ATRIAL FIBRILLATION
     Dosage: 160 MG
     Route: 048
  7. LORTAB [Concomitant]
     Indication: MIGRAINE
  8. ONGLYZA [Concomitant]
     Indication: DIABETES MELLITUS
  9. CYMBALTA [Concomitant]
     Dosage: 60 MG
     Route: 048
  10. NOVOLOG FLEX PEN [Concomitant]
     Indication: DIABETES MELLITUS
  11. FOSAMAX [Concomitant]
     Indication: OSTEOPENIA
     Route: 048
  12. AMITRIPTYLINE [Concomitant]
     Indication: MIGRAINE
     Dosage: 300 MG
     Route: 048
  13. LEVOTHYROXINE [Concomitant]
     Indication: HYPOTHYROIDISM
     Dosage: 50 MCG
     Route: 048
  14. GABAPENTIN [Concomitant]
     Indication: CONVULSION
     Dosage: 900 MG
     Route: 048
  15. SOMA [Concomitant]
     Indication: MIGRAINE
     Dosage: 350 MG
     Route: 048
  16. WARFARIN THERAPY [Concomitant]
  17. KOMBIGLYZE [Concomitant]
  18. PROMETHAZINE [Concomitant]
  19. PHRENILIN FORTE [Concomitant]

REACTIONS (1)
  - Deep vein thrombosis [Recovered/Resolved]
